FAERS Safety Report 5858531-3 (Version None)
Quarter: 2008Q3

REPORT INFORMATION
  Report Type: 
  Country: None (occurrence: None)
  Receive Date: 20080826
  Receipt Date: 20080814
  Transmission Date: 20090109
  Serious: Yes (Hospitalization)
  Sender: FDA-Public Use
  Company Number: DE-PFIZER INC-2008067801

PATIENT
  Sex: Male

DRUGS (3)
  1. LYRICA [Suspect]
     Indication: POLYNEUROPATHY
     Route: 048
  2. LYRICA [Interacting]
     Indication: PAIN
  3. COUMADIN [Interacting]
     Indication: ATRIAL FIBRILLATION
     Route: 048

REACTIONS (2)
  - DRUG INTERACTION [None]
  - INTERNATIONAL NORMALISED RATIO DECREASED [None]
